FAERS Safety Report 23405285 (Version 1)
Quarter: 2024Q1

REPORT INFORMATION
  Report Type: Spontaneous
  Country: FR (occurrence: FR)
  Receive Date: 20240116
  Receipt Date: 20240116
  Transmission Date: 20240410
  Serious: Yes (Hospitalization)
  Sender: FDA-Public Use
  Company Number: None

PATIENT
  Age: 75 Year
  Sex: Male

DRUGS (6)
  1. INFLIXIMAB [Suspect]
     Active Substance: INFLIXIMAB
     Indication: Colitis
     Route: 042
     Dates: start: 20190523, end: 20210105
  2. PENTASA [Suspect]
     Active Substance: MESALAMINE
     Indication: Colitis
     Route: 048
     Dates: start: 20090224, end: 20190311
  3. INFLIXIMAB [Suspect]
     Active Substance: INFLIXIMAB
     Indication: Colitis
     Dosage: CYCLICAL
     Route: 048
     Dates: start: 20210629, end: 20210824
  4. INFLIXIMAB [Suspect]
     Active Substance: INFLIXIMAB
     Indication: Colitis
     Route: 042
     Dates: start: 20210629, end: 20210824
  5. SIMPONI [Suspect]
     Active Substance: GOLIMUMAB
     Indication: Colitis
     Dosage: 1F/4 WEEKS, CYCLICAL
     Route: 058
     Dates: start: 20190311, end: 20190516
  6. INFLECTRA [Suspect]
     Active Substance: INFLIXIMAB-DYYB
     Indication: Colitis
     Dosage: CYCLICAL
     Route: 042
     Dates: start: 20210309, end: 20210505

REACTIONS (2)
  - Follicular lymphoma [Not Recovered/Not Resolved]
  - Product use in unapproved indication [Unknown]

NARRATIVE: CASE EVENT DATE: 20211203
